FAERS Safety Report 5621847-X (Version None)
Quarter: 2008Q1

REPORT INFORMATION
  Report Type: 
  Country: None (occurrence: None)
  Receive Date: 20080206
  Receipt Date: 20080125
  Transmission Date: 20080703
  Serious: Yes (Other)
  Sender: FDA-Public Use
  Company Number: 2008AP000286

PATIENT
  Age: 43 Year
  Sex: Female

DRUGS (5)
  1. PAROXETINE HCL [Suspect]
     Dosage: 39 MG; PO; QD; 50 MG; PO; QD; 40 MG; PO; QD
     Dates: start: 20030303
  2. PAROXETINE HCL [Suspect]
     Dosage: 39 MG; PO; QD; 50 MG; PO; QD; 40 MG; PO; QD
     Dates: start: 20030403
  3. PAROXETINE HCL [Suspect]
     Dosage: 39 MG; PO; QD; 50 MG; PO; QD; 40 MG; PO; QD
     Dates: start: 20030509
  4. PAROXETINE HCL [Suspect]
     Dosage: 39 MG; PO; QD; 50 MG; PO; QD; 40 MG; PO; QD
     Dates: start: 20030718
  5. PAROXETINE HCL [Suspect]
     Dosage: 39 MG; PO; QD; 50 MG; PO; QD; 40 MG; PO; QD
     Dates: start: 20030828

REACTIONS (15)
  - ABDOMINAL PAIN [None]
  - DEPRESSION [None]
  - EMOTIONAL DISTRESS [None]
  - FEELING ABNORMAL [None]
  - INFLUENZA [None]
  - INJURY [None]
  - LETHARGY [None]
  - NIGHT SWEATS [None]
  - NIGHTMARE [None]
  - PANIC ATTACK [None]
  - SENSORY DISTURBANCE [None]
  - SUICIDAL IDEATION [None]
  - TEARFULNESS [None]
  - WEIGHT INCREASED [None]
  - WITHDRAWAL SYNDROME [None]
